FAERS Safety Report 4598302-1 (Version None)
Quarter: 2005Q1

REPORT INFORMATION
  Report Type: 
  Country: None (occurrence: None)
  Receive Date: 20050304
  Receipt Date: 20050224
  Transmission Date: 20050727
  Serious: Yes (Life-Threatening, Hospitalization, Disabling)
  Sender: FDA-Public Use
  Company Number: US-BRISTOL-MYERS SQUIBB COMPANY-12876587

PATIENT
  Sex: Female

DRUGS (2)
  1. PRAVACHOL [Suspect]
  2. BAYCOL [Suspect]

REACTIONS (2)
  - MUSCLE SPASMS [None]
  - MYALGIA [None]
